FAERS Safety Report 7416576-6 (Version None)
Quarter: 2011Q2

REPORT INFORMATION
  Report Type: 
  Country: None (occurrence: None)
  Receive Date: 20110415
  Receipt Date: 20110407
  Transmission Date: 20111010
  Serious: Yes (Hospitalization)
  Sender: FDA-Public Use
  Company Number: US-BIOGENIDEC-2010BI005130

PATIENT
  Age: 51 Year
  Sex: Male

DRUGS (11)
  1. OMEGA 3 FATTY ACID [Concomitant]
  2. REQUIP [Concomitant]
  3. REQUIP [Concomitant]
  4. ADVICOR [Concomitant]
  5. SYNTHROID [Concomitant]
  6. TYSABRI [Suspect]
     Indication: MULTIPLE SCLEROSIS
     Route: 042
     Dates: start: 20080311
  7. ASPIRIN [Concomitant]
  8. TRICOR [Concomitant]
  9. CENTRUM SILVER [Concomitant]
  10. PRINIVIL [Concomitant]
  11. BACLOFEN [Concomitant]

REACTIONS (3)
  - BALANCE DISORDER [None]
  - VASCULAR GRAFT OCCLUSION [None]
  - VOMITING [None]
